FAERS Safety Report 6791366-6 (Version None)
Quarter: 2010Q2

REPORT INFORMATION
  Report Type: 
  Country: None (occurrence: None)
  Receive Date: 20100624
  Receipt Date: 20100616
  Transmission Date: 20101027
  Serious: Yes (Other)
  Sender: FDA-Public Use
  Company Number: US-PFIZER INC-2010076567

PATIENT
  Sex: Female

DRUGS (2)
  1. GLIBENCLAMIDE [Suspect]
     Indication: DIABETES MELLITUS
  2. GLIMEPIRIDE [Suspect]

REACTIONS (1)
  - BLOOD GLUCOSE INCREASED [None]
